FAERS Safety Report 8337858-X (Version None)
Quarter: 2012Q2

REPORT INFORMATION
  Report Type: 
  Country: None (occurrence: None)
  Receive Date: 20120504
  Receipt Date: 20120423
  Transmission Date: 20120825
  Serious: Yes (Other)
  Sender: FDA-Public Use
  Company Number: US-ELI_LILLY_AND_COMPANY-US201105004317

PATIENT
  Sex: Female

DRUGS (8)
  1. FORTEO [Suspect]
     Dosage: 20 UG, QD
  2. FORTEO [Suspect]
     Dosage: 20 UG, QD
  3. FORTEO [Suspect]
     Dosage: 20 UG, QD
  4. FORTEO [Suspect]
     Dosage: 20 UG, QD
  5. FORTEO [Suspect]
     Dosage: 20 UG, QD
  6. FORTEO [Suspect]
     Dosage: 20 UG, QD
  7. FORTEO [Suspect]
     Indication: OSTEOPOROSIS
     Dosage: 20 UG, QD
     Dates: start: 20110401
  8. FORTEO [Suspect]
     Dosage: 20 UG, QD

REACTIONS (12)
  - CARDIAC FAILURE CONGESTIVE [None]
  - BRADYPHRENIA [None]
  - INJECTION SITE HAEMATOMA [None]
  - DYSPNOEA [None]
  - FATIGUE [None]
  - HEARING IMPAIRED [None]
  - SKIN DISCOLOURATION [None]
  - ILL-DEFINED DISORDER [None]
  - INJECTION SITE ERYTHEMA [None]
  - ANGIOPATHY [None]
  - SPINAL DISORDER [None]
  - VENOUS INSUFFICIENCY [None]
